FAERS Safety Report 20481104 (Version 2)
Quarter: 2022Q2

REPORT INFORMATION
  Report Type: Report from Study
  Country: US (occurrence: US)
  Receive Date: 20220216
  Receipt Date: 20220428
  Transmission Date: 20220721
  Serious: Yes (Hospitalization)
  Sender: FDA-Public Use
  Company Number: US-GILEAD-2022-0569949

PATIENT
  Age: 19 Year
  Sex: Male
  Weight: 62.7 kg

DRUGS (43)
  1. BREXUCABTAGENE AUTOLEUCEL [Suspect]
     Active Substance: BREXUCABTAGENE AUTOLEUCEL
     Indication: Lymphoma
     Dosage: 40 ML
     Route: 042
     Dates: start: 20211217, end: 20211217
  2. FLUDARABINE [Suspect]
     Active Substance: FLUDARABINE PHOSPHATE
     Indication: Bone marrow conditioning regimen
     Dosage: 42.8 MG, QD
     Route: 042
     Dates: start: 20211213, end: 20211215
  3. CYCLOPHOSPHAMIDE [Suspect]
     Active Substance: CYCLOPHOSPHAMIDE
     Indication: Bone marrow conditioning regimen
     Dosage: 1540 MG, ONCE
     Route: 042
     Dates: start: 20211215, end: 20211215
  4. MESNA [Suspect]
     Active Substance: MESNA
     Indication: Bone marrow conditioning regimen
     Dosage: 923 MG, ONCE
     Route: 042
     Dates: start: 20211215, end: 20211216
  5. NEURONTIN [Concomitant]
     Active Substance: GABAPENTIN
  6. ALPHAGAN P [Concomitant]
     Active Substance: BRIMONIDINE TARTRATE
  7. TRUSOPT [Concomitant]
     Active Substance: DORZOLAMIDE HYDROCHLORIDE
  8. TIMOPTIC [Concomitant]
     Active Substance: TIMOLOL MALEATE
  9. VALTREX [Concomitant]
     Active Substance: VALACYCLOVIR HYDROCHLORIDE
  10. TUMS [Concomitant]
     Active Substance: CALCIUM CARBONATE
  11. ZOVIRAX [Concomitant]
     Active Substance: ACYCLOVIR
  12. ZOFRAN [Concomitant]
     Active Substance: ONDANSETRON HYDROCHLORIDE
  13. TRANSDERM SCOP [Concomitant]
     Active Substance: SCOPOLAMINE
  14. CELEBREX [Concomitant]
     Active Substance: CELECOXIB
  15. BENADRYL [Concomitant]
     Active Substance: DIPHENHYDRAMINE HYDROCHLORIDE
  16. SODIUM CHLORIDE [Concomitant]
     Active Substance: SODIUM CHLORIDE
  17. PRED FORTE [Concomitant]
     Active Substance: PREDNISOLONE ACETATE
  18. DILAUDID [Concomitant]
     Active Substance: HYDROMORPHONE HYDROCHLORIDE
  19. BACTRIM DS [Concomitant]
     Active Substance: SULFAMETHOXAZOLE\TRIMETHOPRIM
  20. SEPTRA DS [Concomitant]
     Active Substance: SULFAMETHOXAZOLE\TRIMETHOPRIM
  21. SODIUM CHLORIDE 0.9% + DEXTROSE 5% [Concomitant]
  22. ATIVAN [Concomitant]
     Active Substance: LORAZEPAM
  23. MARINOL [Concomitant]
     Active Substance: DRONABINOL
  24. EMEND (FOSAPREPITANT DIMEGLUMINE) [Concomitant]
     Active Substance: FOSAPREPITANT DIMEGLUMINE
  25. LEVAQUIN [Concomitant]
     Active Substance: LEVOFLOXACIN
  26. DIFLUCAN [Concomitant]
     Active Substance: FLUCONAZOLE
  27. MIRALAX [Concomitant]
     Active Substance: POLYETHYLENE GLYCOL 3350
  28. BENADRYL [Concomitant]
     Active Substance: DIPHENHYDRAMINE HYDROCHLORIDE
  29. TYLENOL [Concomitant]
     Active Substance: ACETAMINOPHEN
  30. PENTAM [Concomitant]
     Active Substance: PENTAMIDINE ISETHIONATE
  31. CANCIDAS [Concomitant]
     Active Substance: CASPOFUNGIN ACETATE
  32. MAXIPIME [Concomitant]
     Active Substance: CEFEPIME HYDROCHLORIDE
  33. KLOR-CON [Concomitant]
     Active Substance: POTASSIUM CHLORIDE
  34. CLINDAGEL [Concomitant]
     Active Substance: CLINDAMYCIN PHOSPHATE
  35. PROVENTIL [Concomitant]
     Active Substance: ALBUTEROL
  36. ADRENALIN (EPINEPHRINE) [Concomitant]
     Active Substance: EPINEPHRINE
  37. SOLU-CORTEF [Concomitant]
     Active Substance: HYDROCORTISONE SODIUM SUCCINATE
  38. PEPCID [Concomitant]
     Active Substance: FAMOTIDINE
  39. PFIZER-BIONTECH COVID-19 VACCINE [Concomitant]
     Active Substance: TOZINAMERAN
  40. KEPPRA [Concomitant]
     Active Substance: LEVETIRACETAM
  41. ROCEPHIN [Concomitant]
     Active Substance: CEFTRIAXONE SODIUM
  42. ACTEMRA [Concomitant]
     Active Substance: TOCILIZUMAB
  43. METHYLPREDNISOLONE [Concomitant]
     Active Substance: METHYLPREDNISOLONE

REACTIONS (1)
  - COVID-19 [Not Recovered/Not Resolved]

NARRATIVE: CASE EVENT DATE: 20220211
